FAERS Safety Report 11145511 (Version 4)
Quarter: 2015Q3

REPORT INFORMATION
  Report Type: Spontaneous
  Country: US (occurrence: US)
  Receive Date: 20150616
  Receipt Date: 20150824
  Transmission Date: 20151125
  Serious: No
  Sender: FDA-Public Use
  Company Number: US-ASTRAZENECA-2015SE51085

PATIENT
  Age: 71 Year
  Sex: Female
  Weight: 77 kg

DRUGS (25)
  1. LATANOPROST. [Concomitant]
     Active Substance: LATANOPROST
     Indication: GLAUCOMA
     Dosage: EYE DROPS ONE DROP IN BOTH EYES AT NIGHT
  2. TAMOXIFEN [Suspect]
     Active Substance: TAMOXIFEN
     Indication: MASTECTOMY
     Dosage: 20MG TABLETS, BY MOUTH AT NIGHT
     Route: 048
     Dates: start: 20150805
  3. AROMASIN [Suspect]
     Active Substance: EXEMESTANE
     Indication: BREAST CANCER
     Route: 048
     Dates: start: 20150425
  4. TROLIA [Suspect]
     Active Substance: DENOSUMAB
     Dosage: 60MG, 1 INJECTION SUBCUTANEOUSLY EVERY SIX MONTH
     Route: 058
  5. BACTRIM [Suspect]
     Active Substance: SULFAMETHOXAZOLE\TRIMETHOPRIM
     Indication: SKIN LESION
     Route: 065
     Dates: start: 201505, end: 20150520
  6. TRIAMCINOLONE [Concomitant]
     Active Substance: TRIAMCINOLONE
     Dosage: 1 % APPLY TOPICALLY TWICE DAILY TO RASH ON ARMS AND CHEST
     Route: 061
  7. LACTULOSE. [Concomitant]
     Active Substance: LACTULOSE
     Dosage: 10GM TWO TABLESPOONS AT NIGHT
  8. AROMASIN [Suspect]
     Active Substance: EXEMESTANE
     Indication: BREAST CANCER
     Route: 048
     Dates: start: 20150428, end: 20150511
  9. FEMARA [Suspect]
     Active Substance: LETROZOLE
     Indication: MASTECTOMY
     Route: 065
     Dates: start: 20141120, end: 20150407
  10. WELLBUTRIN [Concomitant]
     Active Substance: BUPROPION HYDROCHLORIDE
     Dosage: GENERIC-1 TABLET BY MOUTH TWICE A DAY
     Route: 048
  11. ARIMIDEX [Suspect]
     Active Substance: ANASTROZOLE
     Indication: BREAST CANCER
     Dosage: TOOK TWICE A WEEK
     Route: 048
  12. LETROZOLE. [Suspect]
     Active Substance: LETROZOLE
     Route: 065
     Dates: start: 2014, end: 20150407
  13. DOCUSATE SODIUM. [Concomitant]
     Active Substance: DOCUSATE SODIUM
     Dosage: 1200MG GEL CAPS BY MOUTH AS NEEDED
     Route: 048
  14. SENIOR MULTIVITAMIN [Concomitant]
     Dosage: ONCE A DAY
  15. ARIMIDEX [Suspect]
     Active Substance: ANASTROZOLE
     Indication: BREAST CANCER
     Route: 048
  16. BENTYL [Concomitant]
     Active Substance: DICYCLOMINE HYDROCHLORIDE
     Indication: ABDOMINAL PAIN
  17. RITALIN [Concomitant]
     Active Substance: METHYLPHENIDATE HYDROCHLORIDE
     Dosage: GENERIC, 10MG 1-2 TIMES A DAY
     Route: 048
  18. VITAMIN B12 [Concomitant]
     Active Substance: CYANOCOBALAMIN
     Dosage: 1000 UNITS BY MOUTH ONCE A DAY
     Route: 048
  19. ARIMIDEX [Suspect]
     Active Substance: ANASTROZOLE
     Indication: BREAST CANCER
     Route: 048
     Dates: start: 20140804, end: 20141106
  20. PROLIA [Suspect]
     Active Substance: DENOSUMAB
     Route: 065
  21. CLOBETASOL PROPIONATE. [Suspect]
     Active Substance: CLOBETASOL PROPIONATE
     Indication: SKIN LESION
     Route: 061
  22. COPICORT [Suspect]
     Active Substance: UNSPECIFIED INGREDIENT
     Indication: SKIN LESION
     Route: 061
     Dates: start: 201505
  23. KLONOPIN [Concomitant]
     Active Substance: CLONAZEPAM
     Dosage: GENERIC-0.5MG ONE TABLET BY MOUTH 3-4 TIMES A DAY
     Route: 048
  24. MELATONIN [Concomitant]
     Active Substance: MELATONIN
     Route: 048
  25. ZOCOR [Concomitant]
     Active Substance: SIMVASTATIN
     Route: 048

REACTIONS (4)
  - Rash pustular [Recovering/Resolving]
  - Crying [Recovered/Resolved]
  - Pruritus [Not Recovered/Not Resolved]
  - Muscle spasms [Recovered/Resolved]

NARRATIVE: CASE EVENT DATE: 20150805
